FAERS Safety Report 8453367-1 (Version None)
Quarter: 2012Q2

REPORT INFORMATION
  Report Type: 
  Country: None (occurrence: None)
  Receive Date: 20120620
  Receipt Date: 20120514
  Transmission Date: 20120825
  Serious: No
  Sender: FDA-Public Use
  Company Number: US-VERTEX PHARMACEUTICALS INC.-AE-2012-007119

PATIENT
  Sex: Female
  Weight: 120.31 kg

DRUGS (8)
  1. VITAMIN D [Concomitant]
     Indication: MEDICAL DIET
     Route: 048
  2. HYDROCHLOROTHIAZIDE [Concomitant]
     Indication: HYPERTENSION
     Route: 048
  3. INCIVEK [Suspect]
     Indication: HEPATITIS C
     Route: 048
     Dates: start: 20120504
  4. RIBAVIRIN [Concomitant]
     Indication: HEPATITIS C
     Route: 048
     Dates: start: 20120504
  5. ATACAND [Concomitant]
     Indication: HYPERTENSION
     Route: 048
  6. IRON PILL [Concomitant]
     Indication: MEDICAL DIET
     Route: 048
  7. BIRTH CONTROL PILLS [Concomitant]
     Route: 048
  8. PEGASYS [Concomitant]
     Indication: HEPATITIS C
     Route: 058
     Dates: start: 20120504

REACTIONS (3)
  - ANAL PRURITUS [None]
  - INAPPROPRIATE SCHEDULE OF DRUG ADMINISTRATION [None]
  - ANORECTAL DISCOMFORT [None]
